FAERS Safety Report 25770560 (Version 1)
Quarter: 2025Q3

REPORT INFORMATION
  Report Type: Spontaneous
  Country: US (occurrence: US)
  Receive Date: 20250908
  Receipt Date: 20250908
  Transmission Date: 20251021
  Serious: Yes (Hospitalization)
  Sender: ARDELYX
  Company Number: US-ARDELYX-2025ARDX006542

PATIENT
  Sex: Female

DRUGS (2)
  1. IBSRELA [Suspect]
     Active Substance: TENAPANOR HYDROCHLORIDE
     Indication: Irritable bowel syndrome
     Route: 048
  2. LINZESS [Concomitant]
     Active Substance: LINACLOTIDE
     Indication: Product used for unknown indication
     Route: 065

REACTIONS (5)
  - Drug ineffective [Unknown]
  - Bowel movement irregularity [Unknown]
  - Diarrhoea [Unknown]
  - Inappropriate schedule of product administration [Unknown]
  - Product use in unapproved indication [Unknown]
